FAERS Safety Report 24641519 (Version 1)
Quarter: 2024Q4

REPORT INFORMATION
  Report Type: Report from Study
  Country: CA (occurrence: CA)
  Receive Date: 20241120
  Receipt Date: 20241120
  Transmission Date: 20250114
  Serious: Yes (Other)
  Sender: SANDOZ
  Company Number: CA-SANDOZ-SDZ2024CA013461

PATIENT
  Sex: Female

DRUGS (1)
  1. HYRIMOZ [Suspect]
     Active Substance: ADALIMUMAB-ADAZ
     Indication: Colitis ulcerative
     Dosage: 80 MG, Q2W (PRE-FILLED SYRINGE)
     Route: 058
     Dates: start: 20220301

REACTIONS (3)
  - Colon neoplasm [Unknown]
  - Haemorrhoids [Unknown]
  - Off label use [Unknown]
